FAERS Safety Report 17579658 (Version 1)
Quarter: 2020Q1

REPORT INFORMATION
  Report Type: Spontaneous
  Country: AT (occurrence: AT)
  Receive Date: 20200325
  Receipt Date: 20200325
  Transmission Date: 20200409
  Serious: Yes (Death, Other)
  Sender: FDA-Public Use
  Company Number: AT-CELLTRION INC.-2020AT020846

PATIENT

DRUGS (5)
  1. GANCICLOVIR. [Suspect]
     Active Substance: GANCICLOVIR
     Indication: CYTOMEGALOVIRUS INFECTION
     Route: 065
  2. PREDNISOLONE. [Suspect]
     Active Substance: PREDNISOLONE
     Indication: HAEMOPHAGOCYTIC LYMPHOHISTIOCYTOSIS
     Dosage: } 1 MG/KG
     Route: 065
  3. RITUXIMAB (UNKNOWN) [Suspect]
     Active Substance: RITUXIMAB
     Indication: ANTISYNTHETASE SYNDROME
     Dosage: ON DAY 8 AND 15 POST HLH DIAGNOSIS
     Route: 065
  4. CYCLOPHOSPHAMIDE. [Suspect]
     Active Substance: CYCLOPHOSPHAMIDE
     Indication: ANTISYNTHETASE SYNDROME
     Dosage: ON DAY 14 POST HLH DIAGNOSIS
     Route: 065
  5. ANAKINRA [Suspect]
     Active Substance: ANAKINRA
     Indication: HAEMOPHAGOCYTIC LYMPHOHISTIOCYTOSIS
     Dosage: FROM DAY 3 POST HLH DIAGNOSIS, ABSOLUTE DOSE OF 100- 200MG 3X DAILY
     Route: 065

REACTIONS (6)
  - Clostridium difficile colitis [Unknown]
  - Nosocomial infection [Unknown]
  - Infection [Fatal]
  - Restrictive pulmonary disease [Unknown]
  - Product use in unapproved indication [Unknown]
  - Vascular device infection [Unknown]
